FAERS Safety Report 21595376 (Version 1)
Quarter: 2022Q4

REPORT INFORMATION
  Report Type: Spontaneous
  Country: US (occurrence: None)
  Receive Date: 20221114
  Receipt Date: 20221114
  Transmission Date: 20230112
  Serious: No
  Sender: FDA-Public Use
  Company Number: None

PATIENT
  Age: 67 Year
  Sex: Female
  Weight: 64.35 kg

DRUGS (4)
  1. GAMUNEX-C [Suspect]
     Active Substance: HUMAN IMMUNOGLOBULIN G
     Indication: Myasthenia gravis
     Route: 042
  2. Lidocaine Cream 4% 15GM [Concomitant]
  3. Acetaminophen Tablets 650MG [Concomitant]
  4. Diphenhydramine IV 25MG [Concomitant]

REACTIONS (6)
  - Infusion related reaction [None]
  - Vancomycin infusion reaction [None]
  - Blood pressure increased [None]
  - Headache [None]
  - Infusion related reaction [None]
  - Drug hypersensitivity [None]

NARRATIVE: CASE EVENT DATE: 20221109
